FAERS Safety Report 5154867-2 (Version None)
Quarter: 2006Q4

REPORT INFORMATION
  Report Type: 
  Country: None (occurrence: None)
  Receive Date: 20061121
  Receipt Date: 20061018
  Transmission Date: 20070319
  Serious: Yes (Other)
  Sender: FDA-Public Use
  Company Number: US-BAYER-200616059BWH

PATIENT
  Age: 69 Year
  Sex: Male

DRUGS (13)
  1. LEVITRA [Suspect]
     Indication: ERECTILE DYSFUNCTION
     Dosage: TOTAL DAILY DOSE: 10 MG  UNIT DOSE: 10 MG
     Route: 048
     Dates: start: 20061015
  2. LEVITRA [Suspect]
     Dosage: TOTAL DAILY DOSE: 20 MG  UNIT DOSE: 10 MG
     Route: 048
     Dates: start: 20061016
  3. COUMADIN [Suspect]
     Indication: ATRIAL FIBRILLATION
     Route: 048
  4. COUMADIN [Suspect]
     Route: 048
  5. COUMADIN [Suspect]
     Route: 048
  6. ASPIRIN [Suspect]
     Indication: ATRIAL FIBRILLATION
     Route: 048
  7. DIGITEK [Concomitant]
     Route: 048
  8. AVANDIA [Concomitant]
  9. HYDROCHLOROTHIAZIDE [Concomitant]
  10. GLYBURIDE [Concomitant]
  11. PRAVACHOL [Concomitant]
  12. LOPRESSOR [Concomitant]
  13. WELLBUTRIN [Concomitant]

REACTIONS (2)
  - BLOOD URINE PRESENT [None]
  - ERECTILE DYSFUNCTION [None]
